FAERS Safety Report 5278237-1 (Version None)
Quarter: 2007Q1

REPORT INFORMATION
  Report Type: 
  Country: None (occurrence: None)
  Receive Date: 20070328
  Receipt Date: 20070322
  Transmission Date: 20070707
  Serious: Yes (Hospitalization)
  Sender: FDA-Public Use
  Company Number: DK-ELI_LILLY_AND_COMPANY-DK200703004778

PATIENT
  Age: 66 Year
  Sex: Female

DRUGS (3)
  1. OLANZAPINE [Suspect]
     Indication: DELUSIONAL DISORDER, PERSECUTORY TYPE
     Dosage: 15-20 MG, DAILY (1/D)
     Route: 048
     Dates: start: 20070108, end: 20070126
  2. PERPHENAZINE [Concomitant]
     Indication: DELUSIONAL DISORDER, PERSECUTORY TYPE
     Dosage: 2-4 MG, DAILY (1/D)
     Route: 048
  3. OXAZEPAM [Concomitant]
     Dosage: 7.5-15 MG, DAILY (1/D)
     Route: 048
     Dates: start: 20070101, end: 20070305

REACTIONS (6)
  - ALLERGY TO METALS [None]
  - ERYTHEMA [None]
  - FACE OEDEMA [None]
  - FEELING HOT [None]
  - RASH [None]
  - SWELLING [None]
